FAERS Safety Report 8002681-2 (Version None)
Quarter: 2011Q4

REPORT INFORMATION
  Report Type: 
  Country: None (occurrence: None)
  Receive Date: 20111222
  Receipt Date: 20111214
  Transmission Date: 20120403
  Serious: Yes (Hospitalization, Disabling)
  Sender: FDA-Public Use
  Company Number: US-MERCK-1102USA02268

PATIENT
  Age: 63 Year
  Sex: Female

DRUGS (16)
  1. FOSAMAX [Suspect]
     Route: 048
     Dates: start: 20051027, end: 20090101
  2. FOSAMAX PLUS D [Suspect]
     Route: 048
     Dates: start: 20080424
  3. VITAMINS (UNSPECIFIED) [Concomitant]
     Route: 065
  4. FOSAMAX [Suspect]
     Indication: OSTEOPENIA
     Route: 048
     Dates: start: 20030401
  5. FOSAMAX PLUS D [Suspect]
     Indication: OSTEOPOROSIS
     Route: 048
     Dates: start: 20070501, end: 20090201
  6. ASCORBIC ACID [Concomitant]
     Route: 065
  7. VITAMIN E [Concomitant]
     Route: 065
  8. FOSAMAX [Suspect]
     Indication: OSTEOPOROSIS
     Route: 048
     Dates: start: 20030401
  9. FOSAMAX PLUS D [Suspect]
     Route: 048
     Dates: start: 20060427
  10. PREMPRO [Concomitant]
     Route: 065
     Dates: start: 20000301
  11. FOSAMAX [Suspect]
     Route: 048
     Dates: start: 20051027, end: 20090101
  12. CALCIUM (UNSPECIFIED) [Concomitant]
     Route: 065
  13. ACTONEL [Suspect]
     Indication: OSTEOPENIA
     Route: 065
     Dates: start: 20010101, end: 20030701
  14. FOSAMAX PLUS D [Suspect]
     Indication: OSTEOPENIA
     Route: 048
     Dates: start: 20070501, end: 20090201
  15. FOSAMAX PLUS D [Suspect]
     Route: 048
     Dates: start: 20080424
  16. FOSAMAX PLUS D [Suspect]
     Route: 048
     Dates: start: 20060427

REACTIONS (18)
  - COUGH [None]
  - BREAST PAIN [None]
  - HELICOBACTER TEST POSITIVE [None]
  - GASTRITIS [None]
  - FALL [None]
  - ADVERSE DRUG REACTION [None]
  - ROAD TRAFFIC ACCIDENT [None]
  - CARPAL TUNNEL SYNDROME [None]
  - RIB FRACTURE [None]
  - PAIN IN EXTREMITY [None]
  - HEADACHE [None]
  - ASTHENIA [None]
  - DYSPEPSIA [None]
  - PATHOLOGICAL FRACTURE [None]
  - FEMUR FRACTURE [None]
  - INJURY [None]
  - INSOMNIA [None]
  - CERVICOBRACHIAL SYNDROME [None]
